FAERS Safety Report 17955965 (Version 1)
Quarter: 2020Q2

REPORT INFORMATION
  Report Type: Spontaneous
  Country: US (occurrence: US)
  Receive Date: 20200629
  Receipt Date: 20200629
  Transmission Date: 20200714
  Serious: No
  Sender: FDA-Public Use
  Company Number: US-PFIZER INC-2020245229

PATIENT
  Age: 55 Year
  Sex: Female
  Weight: 79.38 kg

DRUGS (1)
  1. DOCETAXEL. [Suspect]
     Active Substance: DOCETAXEL
     Indication: CHEMOTHERAPY
     Dosage: UNK, (1ST IN APR2020, 2ND IN MAY2020, 3RD ON 05JUN2020)
     Route: 042
     Dates: start: 202004

REACTIONS (1)
  - Alopecia [Unknown]
